FAERS Safety Report 18046491 (Version 1)
Quarter: 2020Q3

REPORT INFORMATION
  Report Type: Spontaneous
  Country: AU (occurrence: AU)
  Receive Date: 20200721
  Receipt Date: 20200721
  Transmission Date: 20201103
  Serious: No
  Sender: FDA-Public Use
  Company Number: AU-BRISTOL-MYERS SQUIBB COMPANY-BMS-2020-058242

PATIENT
  Age: 73 Year
  Sex: Female
  Weight: 87 kg

DRUGS (1)
  1. ORENCIA [Suspect]
     Active Substance: ABATACEPT
     Indication: RHEUMATOID ARTHRITIS
     Dosage: 125 MILLIGRAM, QWK
     Route: 058
     Dates: start: 2020

REACTIONS (5)
  - Injection site erythema [Unknown]
  - Pruritus [Recovering/Resolving]
  - Device malfunction [Unknown]
  - Injection site pruritus [Unknown]
  - Device leakage [Unknown]

NARRATIVE: CASE EVENT DATE: 20200711
